FAERS Safety Report 19829352 (Version 1)
Quarter: 2021Q3

REPORT INFORMATION
  Report Type: Spontaneous
  Country: US (occurrence: US)
  Receive Date: 20210914
  Receipt Date: 20210914
  Transmission Date: 20211014
  Serious: No
  Sender: FDA-Public Use
  Company Number: US-GLENMARK PHARMACEUTICALS-2021GMK054470

PATIENT

DRUGS (2)
  1. ATOVAQUONE ORAL SUSPENSION USP [750 MG/5 ML] [Suspect]
     Active Substance: ATOVAQUONE
     Indication: ANTIFUNGAL PROPHYLAXIS
     Dosage: 1500 MILLIGRAM, QD
     Route: 048
     Dates: start: 201906
  2. ATOVAQUONE ORAL SUSPENSION USP [750 MG/5 ML] [Suspect]
     Active Substance: ATOVAQUONE
     Indication: PNEUMOCYSTIS JIROVECII PNEUMONIA
     Dosage: 1500 MILLIGRAM, QD
     Route: 048

REACTIONS (5)
  - No adverse event [Unknown]
  - Product taste abnormal [Unknown]
  - Product quality issue [Unknown]
  - Liquid product physical issue [Unknown]
  - Product administration error [Unknown]
